FAERS Safety Report 6867666-8 (Version None)
Quarter: 2010Q3

REPORT INFORMATION
  Report Type: 
  Country: None (occurrence: None)
  Receive Date: 20100722
  Receipt Date: 20100222
  Transmission Date: 20110219
  Serious: No
  Sender: FDA-Public Use
  Company Number: US-BAUSCH-2010BL001051

PATIENT
  Age: 40 Year
  Sex: Female

DRUGS (4)
  1. OPCON-A [Suspect]
     Indication: SJOGREN'S SYNDROME
     Route: 047
     Dates: start: 20050101
  2. OPCON-A [Suspect]
     Indication: OFF LABEL USE
     Route: 047
     Dates: start: 20050101
  3. MULTI-VITAMINS [Concomitant]
  4. FISH OIL [Concomitant]

REACTIONS (2)
  - INSTILLATION SITE PAIN [None]
  - THERAPEUTIC RESPONSE UNEXPECTED [None]
